FAERS Safety Report 5777014-2 (Version None)
Quarter: 2008Q2

REPORT INFORMATION
  Report Type: 
  Country: None (occurrence: None)
  Receive Date: 20080618
  Receipt Date: 20080512
  Transmission Date: 20081010
  Serious: No
  Sender: FDA-Public Use
  Company Number: US-ASTRAZENECA-2008UW08337

PATIENT
  Age: 63 Year
  Sex: Female
  Weight: 56.7 kg

DRUGS (7)
  1. SYMBICORT [Suspect]
     Indication: ASTHMA
     Dosage: 160/4.5 MCG 1 PUFF BID
     Route: 055
     Dates: start: 20080324
  2. SYMBICORT [Suspect]
     Indication: EMPHYSEMA
     Dosage: 160/4.5 MCG 1 PUFF BID
     Route: 055
     Dates: start: 20080324
  3. PEPCID [Concomitant]
  4. ATENOLOL [Concomitant]
  5. DIOVAN HCT [Concomitant]
  6. LIPITOR [Concomitant]
  7. ASPIRIN [Concomitant]

REACTIONS (7)
  - BLOOD SODIUM DECREASED [None]
  - DEFAECATION URGENCY [None]
  - GASTROOESOPHAGEAL REFLUX DISEASE [None]
  - INFLUENZA LIKE ILLNESS [None]
  - NAUSEA [None]
  - SOMNAMBULISM [None]
  - STOMACH DISCOMFORT [None]
